FAERS Safety Report 19685072 (Version 1)
Quarter: 2021Q3

REPORT INFORMATION
  Report Type: Spontaneous
  Country: US (occurrence: US)
  Receive Date: 20210811
  Receipt Date: 20210811
  Transmission Date: 20211014
  Serious: Yes (Other)
  Sender: FDA-Public Use
  Company Number: None

PATIENT
  Sex: Female

DRUGS (2)
  1. BOTOX [Suspect]
     Active Substance: ONABOTULINUMTOXINA
     Indication: MIGRAINE WITHOUT AURA
     Dosage: ?          OTHER FREQUENCY:Q 3 MONTHS;?
     Route: 030
     Dates: start: 20210302
  2. BOTOX [Suspect]
     Active Substance: ONABOTULINUMTOXINA
     Indication: MIGRAINE
     Dosage: ?          OTHER FREQUENCY:Q 3 MONTHS;?
     Route: 030
     Dates: start: 20210302

REACTIONS (1)
  - Cholecystectomy [None]
